FAERS Safety Report 9791330 (Version 5)
Quarter: 2014Q2

REPORT INFORMATION
  Report Type: Report from Study
  Country: DE (occurrence: DE)
  Receive Date: 20140101
  Receipt Date: 20140623
  Transmission Date: 20141212
  Serious: Yes (Death, Hospitalization, Other)
  Sender: FDA-Public Use
  Company Number: DE-ROCHE-1275611

PATIENT
  Age: 80 Year
  Sex: Female
  Weight: 85 kg

DRUGS (33)
  1. PERTUZUMAB [Suspect]
     Indication: HER-2 POSITIVE BREAST CANCER
     Dosage: LOADING DOSE.
     Route: 042
     Dates: start: 20130731, end: 20130731
  2. PERTUZUMAB [Suspect]
     Dosage: MAINTENANCE DOSE.  THERAPY INTERRUPTED.
     Route: 042
     Dates: start: 20130821, end: 20130821
  3. PERTUZUMAB [Suspect]
     Dosage: THERAPY RE-STARTED.
     Route: 042
     Dates: start: 20140122, end: 20140122
  4. PERTUZUMAB [Suspect]
     Route: 042
     Dates: start: 20140528
  5. HERCEPTIN [Concomitant]
     Indication: BREAST CANCER
     Route: 042
     Dates: start: 20130731, end: 20130731
  6. HERCEPTIN [Concomitant]
     Route: 042
     Dates: start: 20130821
  7. HERCEPTIN [Concomitant]
     Route: 042
     Dates: start: 20130911
  8. HERCEPTIN [Concomitant]
     Route: 042
     Dates: start: 20131002
  9. HERCEPTIN [Concomitant]
     Route: 042
     Dates: start: 20131023
  10. HERCEPTIN [Concomitant]
     Route: 042
     Dates: start: 20131113
  11. HERCEPTIN [Concomitant]
     Route: 042
     Dates: start: 20131204
  12. HERCEPTIN [Concomitant]
     Route: 042
     Dates: start: 20131230
  13. HERCEPTIN [Concomitant]
     Route: 042
     Dates: start: 20140122
  14. HERCEPTIN [Concomitant]
     Route: 042
     Dates: start: 20140212
  15. HERCEPTIN [Concomitant]
     Route: 042
     Dates: start: 20140305
  16. HERCEPTIN [Concomitant]
     Route: 042
     Dates: start: 20140326
  17. HERCEPTIN [Concomitant]
     Route: 042
     Dates: start: 20140416
  18. HERCEPTIN [Concomitant]
     Route: 042
     Dates: start: 20140507
  19. HERCEPTIN [Concomitant]
     Route: 042
     Dates: start: 20140528
  20. BISOPROLOL [Concomitant]
     Indication: HYPERTENSION
     Route: 048
     Dates: start: 20130429
  21. TORASEMIDE [Concomitant]
     Indication: HYPERTENSION
     Route: 048
     Dates: start: 20130429
  22. L-THYROXIN [Concomitant]
     Indication: THYROID DISORDER
     Route: 048
     Dates: start: 1999
  23. LANICOR [Concomitant]
     Indication: CARDIAC FAILURE
     Route: 048
     Dates: start: 1999
  24. DOCETAXEL [Concomitant]
     Indication: BREAST CANCER
     Route: 042
     Dates: start: 20130619
  25. DOCETAXEL [Concomitant]
     Route: 042
     Dates: start: 20130710
  26. DOCETAXEL [Concomitant]
     Route: 042
     Dates: start: 20130731
  27. DOCETAXEL [Concomitant]
     Route: 042
     Dates: start: 20130821
  28. DOCETAXEL [Concomitant]
     Route: 042
     Dates: start: 20130911
  29. DOCETAXEL [Concomitant]
     Route: 042
     Dates: start: 20131002
  30. GRANISETRON [Concomitant]
     Indication: VOMITING
     Route: 048
     Dates: start: 20130731
  31. DEXAMETHASON [Concomitant]
     Route: 048
     Dates: start: 20130731
  32. KALINOR [Concomitant]
     Indication: HYPOKALAEMIA
     Route: 048
     Dates: start: 20130905, end: 20130907
  33. ERYTHROCYTE CONCENTRATE [Concomitant]
     Indication: ANAEMIA
     Route: 042
     Dates: start: 201309, end: 201309

REACTIONS (6)
  - Death [Fatal]
  - Interstitial lung disease [Recovered/Resolved]
  - Urinary tract infection [Unknown]
  - Spinal deformity [Unknown]
  - Pyrexia [Unknown]
  - Malignant neoplasm progression [Unknown]
